FAERS Safety Report 21161797 (Version 2)
Quarter: 2022Q3

REPORT INFORMATION
  Report Type: Spontaneous
  Country: PT (occurrence: PT)
  Receive Date: 20220802
  Receipt Date: 20220826
  Transmission Date: 20221027
  Serious: Yes (Other)
  Sender: FDA-Public Use
  Company Number: PT-NOVARTISPH-NVSC2022PT174380

PATIENT
  Age: 30 Year
  Sex: Female

DRUGS (8)
  1. ADALIMUMAB [Suspect]
     Active Substance: ADALIMUMAB
     Indication: Behcet^s syndrome
     Dosage: UNK
     Route: 065
  2. ADALIMUMAB [Suspect]
     Active Substance: ADALIMUMAB
     Indication: Colitis
  3. INFLIXIMAB [Suspect]
     Active Substance: INFLIXIMAB
     Indication: Behcet^s syndrome
     Dosage: UNK
     Route: 065
  4. METHOTREXATE [Suspect]
     Active Substance: METHOTREXATE
     Indication: Behcet^s syndrome
     Dosage: UNK
     Route: 065
  5. VEDOLIZUMAB [Suspect]
     Active Substance: VEDOLIZUMAB
     Indication: Behcet^s syndrome
     Dosage: UNK
     Route: 065
  6. AZATHIOPRINE [Suspect]
     Active Substance: AZATHIOPRINE
     Indication: Behcet^s syndrome
     Dosage: 150 MG, QD
     Route: 065
  7. USTEKINUMAB [Suspect]
     Active Substance: USTEKINUMAB
     Indication: Behcet^s syndrome
     Dosage: 90 MG, EVERY 8 WEEKS
     Route: 058
  8. PREDNISOLONE [Suspect]
     Active Substance: PREDNISOLONE
     Indication: Behcet^s syndrome
     Dosage: 7.5 MG, QD
     Route: 048

REACTIONS (10)
  - Cytomegalovirus colitis [Unknown]
  - Mesangioproliferative glomerulonephritis [Unknown]
  - IgA nephropathy [Recovering/Resolving]
  - Tubulointerstitial nephritis [Recovering/Resolving]
  - Behcet^s syndrome [Unknown]
  - Cytomegalovirus infection [Unknown]
  - Renal impairment [Recovered/Resolved]
  - Drug ineffective for unapproved indication [Unknown]
  - Asthenia [Unknown]
  - Haematuria [Recovered/Resolved]
